FAERS Safety Report 6066614-0 (Version None)
Quarter: 2009Q1

REPORT INFORMATION
  Report Type: 
  Country: None (occurrence: None)
  Receive Date: 20090205
  Receipt Date: 20090203
  Transmission Date: 20090719
  Serious: Yes (Other)
  Sender: FDA-Public Use
  Company Number: B0557202A

PATIENT
  Age: 78 Year
  Sex: Male

DRUGS (1)
  1. VALTREX [Suspect]
     Indication: DRUG USE FOR UNKNOWN INDICATION
     Dosage: 1000MG THREE TIMES PER DAY
     Route: 048
     Dates: end: 20090123

REACTIONS (2)
  - DELIRIUM [None]
  - HALLUCINATION [None]
